FAERS Safety Report 17982238 (Version 1)
Quarter: 2020Q3

REPORT INFORMATION
  Report Type: Spontaneous
  Country: RO (occurrence: RO)
  Receive Date: 20200706
  Receipt Date: 20200706
  Transmission Date: 20201103
  Serious: Yes (Other)
  Sender: FDA-Public Use
  Company Number: RO-SUN PHARMACEUTICAL INDUSTRIES LTD-2020RR-252233

PATIENT
  Sex: Female

DRUGS (9)
  1. ROMPARKIN 2MG COMPRIMATE [Suspect]
     Active Substance: TRIHEXYPHENIDYL
     Indication: SCHIZOPHRENIA
     Dosage: 2 MILLIGRAM, IN THE EVENING
     Route: 065
  2. OLANZAPINE. [Suspect]
     Active Substance: OLANZAPINE
     Indication: SCHIZOPHRENIA
     Dosage: 5 MILLIGRAM, IN THE EVENING
     Route: 065
  3. GERODORM [Suspect]
     Active Substance: CINOLAZEPAM
     Indication: SCHIZOPHRENIA
     Dosage: 1/2
     Route: 065
  4. DEPAKIN [Suspect]
     Active Substance: VALPROATE SODIUM
     Indication: SCHIZOPHRENIA
     Dosage: 150, IN THE EVENING
     Route: 065
  5. DEPAKIN [Suspect]
     Active Substance: VALPROATE SODIUM
     Indication: PSYCHOTIC DISORDER
     Dosage: 300, IN THE MORNING
     Route: 065
  6. RISPERIDONE. [Suspect]
     Active Substance: RISPERIDONE
     Indication: PSYCHOTIC DISORDER
     Dosage: 2 MILLILITER, IN THE MORNING AN IN THE EVENING
     Route: 065
  7. DIAZEPAM. [Suspect]
     Active Substance: DIAZEPAM
     Indication: PSYCHOTIC DISORDER
     Dosage: 10, IN THE EVENING
     Route: 065
  8. RIVOTRIL [Suspect]
     Active Substance: CLONAZEPAM
     Indication: SCHIZOPHRENIA
     Dosage: 1 MILLIGRAM, DAILY
     Route: 065
  9. ROMPARKIN 2MG COMPRIMATE [Suspect]
     Active Substance: TRIHEXYPHENIDYL
     Indication: PSYCHOTIC DISORDER
     Dosage: 2 MILLIGRAM, IN THE MORNING AND IN THE EVENING
     Route: 065

REACTIONS (5)
  - Gait disturbance [Unknown]
  - Sedation [Unknown]
  - Aphasia [Unknown]
  - Dysstasia [Unknown]
  - Drug ineffective [Unknown]
